FAERS Safety Report 5496628-0 (Version None)
Quarter: 2007Q4

REPORT INFORMATION
  Report Type: 
  Country: None (occurrence: None)
  Receive Date: 20071025
  Receipt Date: 20070627
  Transmission Date: 20080405
  Serious: No
  Sender: FDA-Public Use
  Company Number: A0660312A

PATIENT
  Age: 54 Year
  Sex: Female

DRUGS (7)
  1. ADVAIR DISKUS 100/50 [Suspect]
     Indication: ASTHMA
     Dosage: 2PUFF TWICE PER DAY
     Route: 055
  2. TRUSOPT [Concomitant]
  3. ALPHAGAN [Concomitant]
  4. ZOMIG [Concomitant]
  5. MUCINEX [Concomitant]
  6. ALLEGRA [Concomitant]
  7. BENADRYL [Concomitant]

REACTIONS (3)
  - BLOOD PRESSURE INCREASED [None]
  - INTRAOCULAR PRESSURE INCREASED [None]
  - WEIGHT INCREASED [None]
